FAERS Safety Report 5367017-4 (Version None)
Quarter: 2007Q2

REPORT INFORMATION
  Report Type: 
  Country: None (occurrence: None)
  Receive Date: 20070622
  Receipt Date: 20070618
  Transmission Date: 20071010
  Serious: Yes (Hospitalization)
  Sender: FDA-Public Use
  Company Number: JP-AVENTIS-200611498JP

PATIENT
  Age: 32 Year
  Sex: Female
  Weight: 49.9 kg

DRUGS (5)
  1. ARAVA [Suspect]
     Indication: RHEUMATOID ARTHRITIS
     Route: 048
     Dates: start: 20050822, end: 20050824
  2. ARAVA [Suspect]
     Route: 048
     Dates: start: 20050825, end: 20060510
  3. PREDONINE                          /00016201/ [Concomitant]
     Indication: RHEUMATOID ARTHRITIS
     Route: 048
     Dates: start: 19990903
  4. VOLTAREN-XR [Concomitant]
     Indication: RHEUMATOID ARTHRITIS
     Route: 048
     Dates: start: 20000707
  5. SOLON [Concomitant]
     Route: 048
     Dates: start: 19990922

REACTIONS (1)
  - DRUG ERUPTION [None]
